FAERS Safety Report 13399419 (Version 2)
Quarter: 2017Q2

REPORT INFORMATION
  Report Type: Other
  Country: GB (occurrence: GB)
  Receive Date: 20170404
  Receipt Date: 20170629
  Transmission Date: 20170830
  Serious: Yes (Other)
  Sender: FDA-Public Use
  Company Number: GB-STRIDES ARCOLAB LIMITED-2017SP005584

PATIENT

DRUGS (3)
  1. FERROUS GLUCONATE [Suspect]
     Active Substance: FERROUS GLUCONATE
     Dosage: UNK
     Route: 048
  2. METHYLCOBALAMIN. [Concomitant]
     Active Substance: METHYLCOBALAMIN
     Indication: VITAMIN B12 DEFICIENCY
     Dosage: UNK, UNKNOWN
     Route: 065
  3. FERROUS GLUCONATE [Suspect]
     Active Substance: FERROUS GLUCONATE
     Indication: IRON DEFICIENCY
     Dosage: UNK
     Route: 048
     Dates: start: 2013

REACTIONS (10)
  - Hair colour changes [Unknown]
  - Muscular weakness [Unknown]
  - Alopecia [Unknown]
  - Chest pain [Unknown]
  - Dysstasia [Unknown]
  - Contusion [Unknown]
  - Abnormal loss of weight [Unknown]
  - Vision blurred [Unknown]
  - Headache [Unknown]
  - Symptom masked [Unknown]
